FAERS Safety Report 25915318 (Version 1)
Quarter: 2025Q4

REPORT INFORMATION
  Report Type: Spontaneous
  Country: CA (occurrence: CA)
  Receive Date: 20251013
  Receipt Date: 20251013
  Transmission Date: 20260117
  Serious: Yes (Other)
  Sender: KYOWA
  Company Number: CA-KYOWAKIRIN-2025KK019521

PATIENT

DRUGS (1)
  1. POTELIGEO [Suspect]
     Active Substance: MOGAMULIZUMAB-KPKC
     Indication: Cutaneous T-cell lymphoma
     Dosage: COMPLETED CYCLE 1 (4 DOSES)
     Route: 065

REACTIONS (10)
  - Hypothyroidism [Unknown]
  - Myositis [Unknown]
  - Pruritus [Recovering/Resolving]
  - Rash [Recovering/Resolving]
  - Pain in extremity [Unknown]
  - Sleep disorder [Unknown]
  - Muscle tightness [Unknown]
  - Sluggishness [Unknown]
  - Bradykinesia [Unknown]
  - Dry skin [Unknown]
